FAERS Safety Report 5245605-3 (Version None)
Quarter: 2007Q1

REPORT INFORMATION
  Report Type: 
  Country: None (occurrence: None)
  Receive Date: 20070223
  Receipt Date: 20070212
  Transmission Date: 20070707
  Serious: Yes (Hospitalization, Other)
  Sender: FDA-Public Use
  Company Number: US-PFIZER INC-2007011955

PATIENT
  Sex: Female
  Weight: 64.9 kg

DRUGS (8)
  1. LIPITOR [Suspect]
     Indication: BLOOD CHOLESTEROL INCREASED
  2. CELEBREX [Suspect]
     Indication: OSTEOPOROSIS
  3. CELEBREX [Suspect]
     Indication: ARTHRITIS
  4. VYTORIN [Suspect]
     Indication: BLOOD CHOLESTEROL INCREASED
  5. HYZAAR [Concomitant]
     Indication: HYPERTENSION
  6. SYNTHROID [Concomitant]
     Indication: THYROID DISORDER
  7. VITAMINS [Concomitant]
  8. PRILOSEC [Concomitant]
     Indication: HIATUS HERNIA

REACTIONS (8)
  - ABDOMINAL DISTENSION [None]
  - ABDOMINAL TENDERNESS [None]
  - BODY HEIGHT DECREASED [None]
  - DEHYDRATION [None]
  - DIARRHOEA [None]
  - DIVERTICULITIS [None]
  - GALLBLADDER DISORDER [None]
  - VIRAL INFECTION [None]
